FAERS Safety Report 15378579 (Version 1)
Quarter: 2018Q3

REPORT INFORMATION
  Report Type: Spontaneous
  Country: US (occurrence: US)
  Receive Date: 20180906
  Receipt Date: 20180906
  Transmission Date: 20181010
  Serious: Yes (Disabling, Other)
  Sender: FDA-Public Use
  Company Number: None

PATIENT
  Age: 51 Year
  Sex: Male
  Weight: 114.31 kg

DRUGS (8)
  1. DOXYCYCLINE HYCLATE 100MG TAB [Suspect]
     Active Substance: DOXYCYCLINE HYCLATE
     Indication: CELLULITIS
     Dosage: ?          QUANTITY:1 DF DOSAGE FORM;?
     Route: 048
     Dates: start: 20180709, end: 20180718
  2. METOPROLOT TARTRATE [Concomitant]
  3. TULUCITY [Concomitant]
  4. SUCRALSATE [Concomitant]
  5. GLIPIZIDE. [Concomitant]
     Active Substance: GLIPIZIDE
  6. BENAZEPRIL AND HYDROCHLOROTHIAZIDE [Concomitant]
     Active Substance: BENAZEPRIL HYDROCHLORIDE\HYDROCHLOROTHIAZIDE
  7. METFORIN HCL [Concomitant]
  8. OMPERAZOLE DR [Concomitant]

REACTIONS (4)
  - Skin discolouration [None]
  - Gastritis erosive [None]
  - Haematemesis [None]
  - Genital disorder male [None]

NARRATIVE: CASE EVENT DATE: 20180718
